FAERS Safety Report 20803467 (Version 1)
Quarter: 2022Q2

REPORT INFORMATION
  Report Type: Other
  Country: CZ (occurrence: CZ)
  Receive Date: 20220509
  Receipt Date: 20220509
  Transmission Date: 20220721
  Serious: Yes (Other)
  Sender: FDA-Public Use
  Company Number: CZ-002147023-NVSC2022CZ093529

PATIENT
  Sex: Male

DRUGS (19)
  1. DOXORUBICIN [Suspect]
     Active Substance: DOXORUBICIN
     Indication: Diffuse large B-cell lymphoma stage IV
     Dosage: UNK, CYCLIC, (IN THE FIRST LINE, 2 CYCLES OF CHOP REGIMEN)
     Route: 065
  2. DOXORUBICIN [Suspect]
     Active Substance: DOXORUBICIN
     Dosage: UNK, CYCLIC, (IN THE FIRST LINE, 3 CYCLES OF R-CHOP REGIMEN)
     Route: 065
  3. DOXORUBICIN [Suspect]
     Active Substance: DOXORUBICIN
     Dosage: UNK, CYCLIC (IN THE SECOND LINE, 3 CYCLES OF R-CHOEP REGIMEN)
     Route: 065
  4. CYCLOPHOSPHAMIDE [Suspect]
     Active Substance: CYCLOPHOSPHAMIDE
     Indication: Diffuse large B-cell lymphoma stage IV
     Dosage: UNK, CYCLIC, (IN THE FIRST LINE, 3 CYCLES OF R-CHOP REGIMEN)
     Route: 065
  5. CYCLOPHOSPHAMIDE [Suspect]
     Active Substance: CYCLOPHOSPHAMIDE
     Dosage: UNK, CYCLIC, (IN THE SECOND LINE, 3 CYCLES OF R-CHOEP REGIMEN)
     Route: 065
  6. CYCLOPHOSPHAMIDE [Suspect]
     Active Substance: CYCLOPHOSPHAMIDE
     Dosage: UNK, CYCLIC, (IN THE FIRST LINE, 2 CYCLES OF CHOP REGIMEN)
     Route: 065
  7. VINCRISTINE [Suspect]
     Active Substance: VINCRISTINE
     Indication: Diffuse large B-cell lymphoma stage IV
     Dosage: UNK, CYCLIC, (IN THE SECOND LINE, 3 CYCLES OF R-CHOEP REGIMEN)
     Route: 065
  8. VINCRISTINE [Suspect]
     Active Substance: VINCRISTINE
     Dosage: UNK, CYCLIC, (IN THE FIRST LINE, 2 CYCLES OF CHOP REGIMEN)
     Route: 065
  9. VINCRISTINE [Suspect]
     Active Substance: VINCRISTINE
     Dosage: UNK, CYCLIC, (IN THE FIRST LINE, 3 CYCLES OF R-CHOP REGIMEN)
     Route: 065
  10. RITUXIMAB [Suspect]
     Active Substance: RITUXIMAB
     Indication: Diffuse large B-cell lymphoma stage IV
     Dosage: UNK, CYCLIC, (IN THE FIRST LINE, 3 CYCLES OF R-CHOP REGIMEN)
     Route: 065
  11. RITUXIMAB [Suspect]
     Active Substance: RITUXIMAB
     Dosage: UNK, CYCLIC, (IN THE SECOND LINE, 3 CYCLES OF R-CHOEP REGIMEN)
     Route: 065
  12. RITUXIMAB [Suspect]
     Active Substance: RITUXIMAB
     Dosage: UNK, CYCLIC, (IN THE THIRD LINE, 2 CYCLES OF R-DHAP REGIMEN)
     Route: 065
     Dates: start: 202104
  13. CYTARABINE [Suspect]
     Active Substance: CYTARABINE
     Indication: Diffuse large B-cell lymphoma stage IV
     Dosage: UNK, CYCLIC, (IN THE THIRD LINE, 2 CYCLES OF R-DHAP REGIMEN)
     Route: 065
     Dates: start: 202104
  14. CISPLATIN [Suspect]
     Active Substance: CISPLATIN
     Indication: Diffuse large B-cell lymphoma stage IV
     Dosage: UNK, CYCLIC, (IN THE THIRD LINE, 2 CYCLES OF R-DHAP REGIMEN)
     Route: 065
     Dates: start: 202104
  15. PREDNISONE [Suspect]
     Active Substance: PREDNISONE
     Indication: Diffuse large B-cell lymphoma stage IV
     Dosage: UNK, CYCLIC, (IN THE FIRST LINE, 2 CYCLES OF CHOP REGIMEN)
     Route: 065
  16. PREDNISONE [Suspect]
     Active Substance: PREDNISONE
     Dosage: UNK, CYCLIC, (IN THE FIRST LINE, 3 CYCLES OF R-CHOP REGIMEN)
     Route: 065
  17. PREDNISONE [Suspect]
     Active Substance: PREDNISONE
     Dosage: UNK, CYCLIC, (IN THE SECOND LINE, 3 CYCLES OF R-CHOEP REGIMEN)
     Route: 065
  18. DEXAMETHASONE [Suspect]
     Active Substance: DEXAMETHASONE
     Indication: Diffuse large B-cell lymphoma stage IV
     Dosage: UNK, CYCLIC, (IN THE THIRD LINE 2 CYCLES OF R-DHAP REGIMEN)
     Route: 065
     Dates: start: 202104
  19. ETOPOSIDE [Suspect]
     Active Substance: ETOPOSIDE
     Indication: Diffuse large B-cell lymphoma stage IV
     Dosage: UNK, CYCLIC, (IN THE SECOND LINE, 3 CYCLES OF THE R-CHOEP REGIMEN)
     Route: 065

REACTIONS (4)
  - Off label use [Unknown]
  - Malignant neoplasm progression [Unknown]
  - Diffuse large B-cell lymphoma stage IV [Unknown]
  - Therapy partial responder [Unknown]
